FAERS Safety Report 5823015-5 (Version None)
Quarter: 2008Q3

REPORT INFORMATION
  Report Type: 
  Country: None (occurrence: None)
  Receive Date: 20080725
  Receipt Date: 20080717
  Transmission Date: 20090109
  Serious: Yes (Life-Threatening)
  Sender: FDA-Public Use
  Company Number: B0530542A

PATIENT
  Age: 60 Year
  Sex: Male

DRUGS (1)
  1. HYCAMTIN [Suspect]
     Route: 042

REACTIONS (1)
  - INTERSTITIAL LUNG DISEASE [None]
